FAERS Safety Report 25181297 (Version 1)
Quarter: 2025Q2

REPORT INFORMATION
  Report Type: Spontaneous
  Country: US (occurrence: US)
  Receive Date: 20250410
  Receipt Date: 20250410
  Transmission Date: 20250716
  Serious: Yes (Hospitalization, Other)
  Sender: NOVO NORDISK
  Company Number: US-NOVOPROD-1322990

PATIENT
  Age: 53 Year
  Sex: Female
  Weight: 54.43 kg

DRUGS (9)
  1. OZEMPIC [Suspect]
     Active Substance: SEMAGLUTIDE
     Indication: Obesity
     Dosage: 0.25 MG, QW
     Dates: start: 20211022, end: 20211112
  2. OZEMPIC [Suspect]
     Active Substance: SEMAGLUTIDE
     Dosage: 0.5 MG, QW
     Dates: start: 20211119, end: 20230701
  3. PHENERMINE [Concomitant]
     Indication: Weight control
  4. OXYCODONE [Concomitant]
     Active Substance: OXYCODONE
     Indication: Back pain
     Dates: start: 20120101
  5. OXYCODONE [Concomitant]
     Active Substance: OXYCODONE
     Indication: Neuralgia
  6. GABAPENTIN [Concomitant]
     Active Substance: GABAPENTIN
     Indication: Back pain
     Dates: start: 20120101
  7. GABAPENTIN [Concomitant]
     Active Substance: GABAPENTIN
     Indication: Neuralgia
  8. SYMBICORT [Concomitant]
     Active Substance: BUDESONIDE\FORMOTEROL FUMARATE DIHYDRATE
     Indication: Asthma
     Dates: start: 20180101
  9. ALBUTEROL [Concomitant]
     Active Substance: ALBUTEROL
     Indication: Asthma
     Dates: start: 19950101

REACTIONS (7)
  - Malnutrition [Not Recovered/Not Resolved]
  - Dehydration [Not Recovered/Not Resolved]
  - Decreased appetite [Not Recovered/Not Resolved]
  - Impaired gastric emptying [Not Recovered/Not Resolved]
  - Anxiety [Unknown]
  - Depression [Unknown]
  - Off label use [Unknown]

NARRATIVE: CASE EVENT DATE: 20211001
